FAERS Safety Report 7637570-6 (Version None)
Quarter: 2011Q3

REPORT INFORMATION
  Report Type: 
  Country: None (occurrence: None)
  Receive Date: 20110726
  Receipt Date: 20110719
  Transmission Date: 20111222
  Serious: No
  Sender: FDA-Public Use
  Company Number: US-PFIZER INC-2011163823

PATIENT
  Sex: Male

DRUGS (4)
  1. SOTALOL [Concomitant]
     Indication: ATRIAL FIBRILLATION
     Dosage: UNK
  2. WARFARIN [Concomitant]
     Dosage: UNK
  3. ALAVERT [Suspect]
     Indication: OROPHARYNGEAL PAIN
     Dosage: 20 MG, DAILY
     Dates: start: 20110701, end: 20110701
  4. VYTORIN [Concomitant]
     Indication: BLOOD CHOLESTEROL ABNORMAL
     Dosage: UNK

REACTIONS (2)
  - POLLAKIURIA [None]
  - INCORRECT DOSE ADMINISTERED [None]
